FAERS Safety Report 7676441-6 (Version None)
Quarter: 2011Q3

REPORT INFORMATION
  Report Type: 
  Country: None (occurrence: None)
  Receive Date: 20110811
  Receipt Date: 20110801
  Transmission Date: 20111222
  Serious: Yes (Hospitalization)
  Sender: FDA-Public Use
  Company Number: KR-AMGEN-KORSP2011040398

PATIENT
  Age: 44 Year
  Sex: Male

DRUGS (7)
  1. KETOROLAC TROMETHAMINE [Concomitant]
     Dosage: UNCERTAINTY
     Route: 065
     Dates: start: 20110704, end: 20110709
  2. ALMAGATE [Concomitant]
     Dosage: UNK
     Dates: start: 20110704, end: 20110709
  3. CINACALCET HYDROCHLORIDE [Suspect]
     Route: 048
     Dates: start: 20110613, end: 20110708
  4. CEFIXIME [Concomitant]
     Dosage: UNCERTAINTY
     Route: 065
     Dates: start: 20110629, end: 20110703
  5. CINACALCET HYDROCHLORIDE [Suspect]
     Indication: HYPERPARATHYROIDISM SECONDARY
     Dosage: 25 MG, UNK
     Route: 048
     Dates: start: 20110415, end: 20110612
  6. KETOROLAC TROMETHAMINE [Concomitant]
     Dosage: UNCERTAINTY
     Route: 065
     Dates: start: 20110629, end: 20110630
  7. CEFACLOR [Concomitant]
     Dosage: UNCERTAINTY
     Route: 065
     Dates: start: 20110704, end: 20110709

REACTIONS (3)
  - PLEURAL EFFUSION [None]
  - PERICARDIAL EFFUSION [None]
  - NECK PAIN [None]
